FAERS Safety Report 21321141 (Version 3)
Quarter: 2024Q2

REPORT INFORMATION
  Report Type: Spontaneous
  Country: PL (occurrence: PL)
  Receive Date: 20220912
  Receipt Date: 20240612
  Transmission Date: 20240715
  Serious: Yes (Death, Life-Threatening)
  Sender: FDA-Public Use
  Company Number: None

PATIENT
  Age: 6 Year
  Sex: Male
  Weight: 16 kg

DRUGS (5)
  1. REMICADE [Suspect]
     Active Substance: INFLIXIMAB
     Indication: Colitis ulcerative
     Dosage: NO INTERVAL ,USED IN THE PAST WITHOUT SIDE EFFECTS
     Route: 042
     Dates: start: 20220321, end: 20220321
  2. INFLIXIMAB [Suspect]
     Active Substance: INFLIXIMAB
     Indication: Colitis ulcerative
     Dosage: 86 MG, NO INTERVAL, EXP.: 2025-02-28, USED IN THE PAST WITHOUT SIDE EFFECTS.
     Route: 042
     Dates: start: 20220404, end: 20220404
  3. PREDNISONE [Concomitant]
     Active Substance: PREDNISONE
     Indication: Colitis ulcerative
     Dosage: 7,5MG-5MGNO INTERVALSTILL ADMINISTERED MEDICATION
     Route: 048
     Dates: start: 20220311
  4. PENTASA [Concomitant]
     Active Substance: MESALAMINE
     Indication: Colitis ulcerative
     Dosage: 2X0.5MG, NO INTERVAL, STILL ADMINISTERED MEDICATION
     Route: 048
     Dates: start: 20220221
  5. IMURAN [Concomitant]
     Active Substance: AZATHIOPRINE
     Indication: Colitis ulcerative
     Dosage: 1X25 MILLIGRAM NO INTERVAL, STILL ADMINISTERED MEDICATION
     Route: 048
     Dates: start: 20220310

REACTIONS (7)
  - Oculogyric crisis [Fatal]
  - Extensor plantar response [Fatal]
  - Computerised tomogram head abnormal [Fatal]
  - Altered state of consciousness [Fatal]
  - Loss of consciousness [Fatal]
  - Acute disseminated encephalomyelitis [Fatal]
  - Encephalomyelitis [Fatal]

NARRATIVE: CASE EVENT DATE: 20220404
